FAERS Safety Report 6742331-6 (Version None)
Quarter: 2010Q2

REPORT INFORMATION
  Report Type: 
  Country: None (occurrence: None)
  Receive Date: 20100526
  Receipt Date: 20100518
  Transmission Date: 20101027
  Serious: Yes (Hospitalization)
  Sender: FDA-Public Use
  Company Number: TW-ELI_LILLY_AND_COMPANY-TW201004008227

PATIENT
  Sex: Male
  Weight: 74 kg

DRUGS (35)
  1. GEMCITABINE HYDROCHLORIDE [Suspect]
     Indication: NON-SMALL CELL LUNG CANCER
     Dosage: 1000 MG/M2, DAYS 1 + 8 EVERY 3 WEEKS
     Route: 042
     Dates: start: 20100316
  2. CETUXIMAB [Suspect]
     Indication: NON-SMALL CELL LUNG CANCER
     Dosage: 400 MG/M2, INITIAL DOSE ONLY
     Route: 042
  3. CETUXIMAB [Suspect]
     Dosage: 250 MG/M2, WEEKLY (1/W)
     Route: 042
     Dates: start: 20100316
  4. CARBOPLATIN [Suspect]
     Indication: NON-SMALL CELL LUNG CANCER
     Dosage: AUC 5, DAY 1 EVERY 3 WEEKS
     Route: 042
     Dates: start: 20100316
  5. CLARINASE [Concomitant]
     Dosage: 1 TAB, UNK
     Route: 048
     Dates: start: 20100303, end: 20100325
  6. CLARINASE [Concomitant]
     Dosage: 1 CAP, UNK
     Route: 048
     Dates: start: 20100330, end: 20100419
  7. PANTOPRAZOLE [Concomitant]
     Dosage: 40 MG, DAILY (1/D)
     Route: 048
     Dates: start: 20100312, end: 20100325
  8. PANTOPRAZOLE [Concomitant]
     Dosage: 40 MG, DAILY (1/D)
     Route: 048
     Dates: start: 20100330, end: 20100419
  9. BROWN MIXTURE [Concomitant]
     Dosage: 15 ML, UNK
     Route: 048
     Dates: start: 20100312, end: 20100325
  10. BROWN MIXTURE [Concomitant]
     Dosage: 15 ML, UNK
     Route: 048
     Dates: start: 20100330, end: 20100423
  11. BROWN MIXTURE [Concomitant]
     Dosage: 40 ML, DAILY (1/D)
     Route: 048
     Dates: start: 20100424
  12. AMLODIPINE [Concomitant]
     Dosage: 10 MG, DAILY (1/D)
     Route: 048
     Dates: start: 20100305, end: 20100311
  13. AMLODIPINE [Concomitant]
     Dosage: 5 MG, DAILY (1/D)
     Route: 048
     Dates: start: 20100312, end: 20100325
  14. AMLODIPINE [Concomitant]
     Dosage: 5 MG, DAILY (1/D)
     Route: 048
     Dates: start: 20100330, end: 20100419
  15. ACETAMINOPHEN [Concomitant]
     Indication: PROPHYLAXIS
     Dosage: 2000 MG, DAILY (1/D)
     Route: 048
     Dates: start: 20100315, end: 20100317
  16. GRANISETRON [Concomitant]
     Indication: PROPHYLAXIS
     Dosage: 1 MG, DAILY (1/D)
     Route: 048
     Dates: start: 20100316, end: 20100320
  17. GRANISETRON [Concomitant]
     Dosage: 1 MG, DAILY (1/D)
     Route: 048
     Dates: start: 20100323, end: 20100327
  18. GRANISETRON [Concomitant]
     Dosage: 5 MG, DAILY (1/D)
     Route: 048
     Dates: start: 20100406, end: 20100410
  19. GRANISETRON [Concomitant]
     Dosage: 5 MG, DAILY (1/D)
     Route: 048
     Dates: start: 20100413, end: 20100417
  20. DEXAMETHASONE [Concomitant]
     Indication: PROPHYLAXIS
     Dosage: 8 MG, DAILY (1/D)
     Route: 048
     Dates: start: 20100323, end: 20100327
  21. DEXAMETHASONE [Concomitant]
     Dosage: 8 MG, DAILY (1/D)
     Route: 048
     Dates: start: 20100330, end: 20100405
  22. DEXAMETHASONE [Concomitant]
     Dosage: 4 MG, DAILY (1/D)
     Route: 048
     Dates: start: 20100406, end: 20100415
  23. DEXAMETHASONE [Concomitant]
     Dosage: 4 MG, DAILY (1/D)
     Route: 048
     Dates: start: 20100420, end: 20100421
  24. FLUDIAZEPAM [Concomitant]
     Dosage: 0.5 MG, DAILY (1/D)
     Route: 048
     Dates: start: 20100323, end: 20100423
  25. MEGESTROL ACETATE [Concomitant]
     Dosage: 20 ML, DAILY (1/D)
     Route: 048
     Dates: start: 20100330, end: 20100423
  26. ADENOSINE [Concomitant]
     Indication: SUPRAVENTRICULAR TACHYCARDIA
     Dosage: 30 MG, DAILY (1/D)
     Route: 042
     Dates: start: 20100418, end: 20100418
  27. AMIODARONE [Concomitant]
     Indication: SUPRAVENTRICULAR TACHYCARDIA
     Dosage: 150 MG, DAILY (1/D)
     Route: 042
     Dates: start: 20100418, end: 20100418
  28. GLUCOSE [Concomitant]
     Indication: SUPRAVENTRICULAR TACHYCARDIA
     Dosage: 50 ML, DAILY (1/D)
     Route: 042
     Dates: start: 20100418, end: 20100418
  29. POTASSIUM CHLORIDE [Concomitant]
     Indication: SUPRAVENTRICULAR TACHYCARDIA
     Dosage: 2400 MG, DAILY (1/D)
     Route: 048
     Dates: start: 20100418, end: 20100419
  30. METOCLOPRAMIDE [Concomitant]
     Indication: PROPHYLAXIS
     Dosage: 15 MG, DAILY (1/D)
     Route: 048
     Dates: start: 20100420, end: 20100423
  31. LOSARTAN POTASSIUM [Concomitant]
     Dosage: 50 MG, DAILY (1/D)
     Route: 048
     Dates: start: 20100420, end: 20100423
  32. LOSARTAN POTASSIUM [Concomitant]
     Dosage: 25 MG, DAILY (1/D)
     Route: 048
     Dates: start: 20100424
  33. HYDROXYZINE [Concomitant]
     Dosage: 25 MG, DAILY (1/D)
     Route: 048
     Dates: start: 20100303, end: 20100314
  34. LANSOPRAZOLE [Concomitant]
     Indication: PROPHYLAXIS
     Dosage: 60 MG, DAILY (1/D)
     Route: 048
     Dates: start: 20100303, end: 20100414
  35. CAPTOPRIL [Concomitant]
     Dosage: 75 MG, DAILY (1/D)
     Route: 048
     Dates: start: 20100305, end: 20100314

REACTIONS (1)
  - PNEUMONIA HAEMOPHILUS [None]
